FAERS Safety Report 25151714 (Version 1)
Quarter: 2025Q2

REPORT INFORMATION
  Report Type: Spontaneous
  Country: US (occurrence: US)
  Receive Date: 20250402
  Receipt Date: 20250402
  Transmission Date: 20250717
  Serious: No
  Sender: BAUSCH AND LOMB
  Company Number: US-BAUSCHBL-2025BNL005341

PATIENT
  Age: 76 Year
  Sex: Female

DRUGS (3)
  1. TIMOPTIC [Suspect]
     Active Substance: TIMOLOL MALEATE
     Indication: Glaucoma
     Dosage: 1 GTT BID (TWO TIMES IN A DAY)
     Route: 047
     Dates: start: 2017
  2. TIMOPTIC [Suspect]
     Active Substance: TIMOLOL MALEATE
  3. ZIOPTAN [Concomitant]
     Active Substance: TAFLUPROST
     Indication: Product used for unknown indication
     Dosage: 1 GTT QD (ONCE A DAY)
     Route: 065

REACTIONS (3)
  - Intraocular pressure increased [Unknown]
  - Therapy interrupted [Unknown]
  - Product availability issue [Unknown]
